FAERS Safety Report 13169189 (Version 2)
Quarter: 2017Q1

REPORT INFORMATION
  Report Type: Report from Study
  Country: US (occurrence: US)
  Receive Date: 20170201
  Receipt Date: 20170210
  Transmission Date: 20170428
  Serious: Yes (Hospitalization, Other)
  Sender: FDA-Public Use
  Company Number: US-VIFOR (INTERNATIONAL) INC.-VIT-2017-00789

PATIENT
  Age: 68 Year
  Sex: Female

DRUGS (14)
  1. CALTRATE [Concomitant]
     Active Substance: CALCIUM CARBONATE
  2. CULTURELLE [Concomitant]
     Active Substance: LACTOBACILLUS RHAMNOSUS
  3. VELTASSA [Suspect]
     Active Substance: PATIROMER
     Indication: HYPERKALAEMIA
     Route: 048
     Dates: start: 201608, end: 201609
  4. VELTASSA [Suspect]
     Active Substance: PATIROMER
     Route: 048
     Dates: start: 20170129
  5. PREDNISONE. [Concomitant]
     Active Substance: PREDNISONE
  6. CRANBERRY TABLETS [Concomitant]
  7. ATORVASTATIN [Concomitant]
     Active Substance: ATORVASTATIN
  8. IRON [Concomitant]
     Active Substance: IRON
  9. CENTRUM SILVER [Concomitant]
     Active Substance: MINERALS\VITAMINS
  10. LASIX [Concomitant]
     Active Substance: FUROSEMIDE
     Indication: SWELLING
  11. ASCORBIC ACID. [Concomitant]
     Active Substance: ASCORBIC ACID
  12. HYDRALAZINE [Concomitant]
     Active Substance: HYDRALAZINE HYDROCHLORIDE
  13. RANITIDINE. [Concomitant]
     Active Substance: RANITIDINE
  14. LEVOTHYROXINE. [Concomitant]
     Active Substance: LEVOTHYROXINE

REACTIONS (14)
  - Influenza [Unknown]
  - Malaise [Unknown]
  - Pain [Unknown]
  - Surgery [Unknown]
  - Drug dose omission [Unknown]
  - Clostridium difficile infection [Unknown]
  - Diarrhoea [Unknown]
  - Vomiting [Unknown]
  - Staphylococcal infection [Unknown]
  - Abscess [Recovered/Resolved]
  - Skin burning sensation [Unknown]
  - Swelling [Unknown]
  - Muscle spasms [Not Recovered/Not Resolved]
  - Insomnia [Unknown]

NARRATIVE: CASE EVENT DATE: 20150905
